FAERS Safety Report 8362692-4 (Version None)
Quarter: 2012Q2

REPORT INFORMATION
  Report Type: 
  Country: None (occurrence: None)
  Receive Date: 20120514
  Receipt Date: 20120426
  Transmission Date: 20120825
  Serious: Yes (Other)
  Sender: FDA-Public Use
  Company Number: US-1192031

PATIENT
  Age: 59 Year
  Sex: Male

DRUGS (2)
  1. PREDNISOLONE ACETATE [Concomitant]
  2. VIGAMOX [Suspect]
     Dosage: POSTOPERATIVE + AT THE TIME OF ENDOPHTHALMITIS: ONCE A DAY OPHTHALMIC)
     Route: 047

REACTIONS (7)
  - CONJUNCTIVAL HYPERAEMIA [None]
  - VISUAL ACUITY REDUCED [None]
  - PHOTOPHOBIA [None]
  - COMPLICATIONS OF TRANSPLANT SURGERY [None]
  - ANTIBIOTIC RESISTANT STAPHYLOCOCCUS TEST POSITIVE [None]
  - ENDOPHTHALMITIS [None]
  - VITRITIS [None]
